FAERS Safety Report 7934754-4 (Version None)
Quarter: 2011Q4

REPORT INFORMATION
  Report Type: 
  Country: None (occurrence: None)
  Receive Date: 20111118
  Receipt Date: 20111109
  Transmission Date: 20120403
  Serious: Yes (Hospitalization)
  Sender: FDA-Public Use
  Company Number: DKLU1074754

PATIENT
  Age: 48 Year
  Sex: Female

DRUGS (1)
  1. ONFI [Suspect]
     Indication: ANXIETY
     Dosage: 10 MG MILLIGRAM(S), ORAL
     Route: 048
     Dates: start: 20111104, end: 20111104

REACTIONS (7)
  - APNOEA [None]
  - HEART RATE DECREASED [None]
  - UNRESPONSIVE TO STIMULI [None]
  - SELF-MEDICATION [None]
  - LOSS OF CONSCIOUSNESS [None]
  - COMA [None]
  - HEART RATE INCREASED [None]
